FAERS Safety Report 7979983-9 (Version None)
Quarter: 2011Q4

REPORT INFORMATION
  Report Type: 
  Country: None (occurrence: None)
  Receive Date: 20111214
  Receipt Date: 20111201
  Transmission Date: 20120403
  Serious: Yes (Hospitalization, Other)
  Sender: FDA-Public Use
  Company Number: PHHY2011DE66944

PATIENT
  Sex: Male
  Weight: 68 kg

DRUGS (11)
  1. TASIGNA [Suspect]
     Dosage: 200 MG, BID
     Route: 048
     Dates: start: 20110506, end: 20110518
  2. ASPIRIN [Concomitant]
     Dosage: UNK UKN, UNK
  3. BERLTHYROX [Concomitant]
     Dosage: UNK UKN, UNK
  4. METOPROLOL TARTRATE [Concomitant]
     Indication: HYPERTENSION
     Dosage: UNK
     Route: 048
     Dates: start: 20110722
  5. TASIGNA [Suspect]
     Dosage: 200 MG, TID
     Route: 048
     Dates: start: 20110518, end: 20111024
  6. ALLOPURINOL [Concomitant]
     Dosage: UNK UKN, UNK
  7. TASIGNA [Suspect]
     Indication: CHRONIC MYELOID LEUKAEMIA
     Dosage: 400 MG, BID
     Route: 048
     Dates: start: 20110120, end: 20110429
  8. TASIGNA [Suspect]
     Dosage: UNK UKN, UNK
     Route: 048
  9. SIMVASTATIN [Concomitant]
     Dosage: UNK UKN, UNK
  10. METOPROLOL SUCCINATE [Concomitant]
     Dosage: UNK UKN, UNK
  11. PENTALONG 50 [Concomitant]
     Dosage: UNK UKN, UNK

REACTIONS (8)
  - MYOCARDIAL INFARCTION [None]
  - CORONARY ARTERY DISEASE [None]
  - SWELLING FACE [None]
  - LIP SWELLING [None]
  - SUPRAVENTRICULAR TACHYCARDIA [None]
  - PAIN IN EXTREMITY [None]
  - ANAPHYLACTIC REACTION [None]
  - VENTRICULAR FIBRILLATION [None]
